FAERS Safety Report 19351402 (Version 4)
Quarter: 2021Q4

REPORT INFORMATION
  Report Type: Report from Study
  Country: US (occurrence: US)
  Receive Date: 20210531
  Receipt Date: 20211108
  Transmission Date: 20220303
  Serious: Yes (Hospitalization)
  Sender: FDA-Public Use
  Company Number: US-ACADIA PHARMACEUTICALS INC.-ACA-2021-PIM-001901

PATIENT
  Age: 69 Year
  Sex: Female

DRUGS (11)
  1. NUPLAZID [Suspect]
     Active Substance: PIMAVANSERIN TARTRATE
     Indication: Parkinson^s disease
     Dosage: 34 MILLIGRAM, QD
     Route: 048
     Dates: start: 20210430
  2. NUPLAZID [Suspect]
     Active Substance: PIMAVANSERIN TARTRATE
     Dosage: 34 MILLIGRAM, QD
     Route: 048
     Dates: start: 20210812
  3. GOCOVRI [Suspect]
     Active Substance: AMANTADINE
  4. AMANTADINE [Suspect]
     Active Substance: AMANTADINE
  5. APOKYN [Concomitant]
     Active Substance: APOMORPHINE HYDROCHLORIDE
  6. CARBIDOPA\LEVODOPA [Concomitant]
     Active Substance: CARBIDOPA\LEVODOPA
  7. ENTACAPONE [Concomitant]
     Active Substance: ENTACAPONE
  8. FERROUS SULFATE [Concomitant]
     Active Substance: FERROUS SULFATE
  9. RASAGILINE [Concomitant]
     Active Substance: RASAGILINE
  10. SEROQUEL [Concomitant]
     Active Substance: QUETIAPINE FUMARATE
  11. ZONISAMIDE [Concomitant]
     Active Substance: ZONISAMIDE

REACTIONS (5)
  - Parkinson^s disease [Unknown]
  - Dyspnoea [Unknown]
  - Feeling abnormal [Unknown]
  - Confusional state [Unknown]
  - Somnolence [Unknown]

NARRATIVE: CASE EVENT DATE: 20210510
